FAERS Safety Report 6755688-7 (Version None)
Quarter: 2010Q2

REPORT INFORMATION
  Report Type: 
  Country: None (occurrence: None)
  Receive Date: 20100604
  Receipt Date: 20100601
  Transmission Date: 20101027
  Serious: Yes (Life-Threatening, Hospitalization, Other)
  Sender: FDA-Public Use
  Company Number: PH-ASTRAZENECA-2010SE25037

PATIENT
  Age: 28 Year
  Sex: Male

DRUGS (3)
  1. SEROQUEL [Suspect]
     Indication: SCHIZOPHRENIA
     Route: 048
     Dates: start: 20090901, end: 20091201
  2. SEROQUEL [Suspect]
     Route: 048
     Dates: start: 20091201
  3. SEROQUEL [Suspect]
     Dosage: DRANK 55 TABLETS OF SEROQUEL 300 MG
     Route: 048
     Dates: start: 20100531

REACTIONS (4)
  - COMA [None]
  - INTRA-ABDOMINAL HAEMORRHAGE [None]
  - OVERDOSE [None]
  - PUPILLARY REFLEX IMPAIRED [None]
